FAERS Safety Report 6386901-6 (Version None)
Quarter: 2009Q4

REPORT INFORMATION
  Report Type: 
  Country: None (occurrence: None)
  Receive Date: 20091001
  Receipt Date: 20091001
  Transmission Date: 20100525
  Serious: Yes (Life-Threatening)
  Sender: FDA-Public Use
  Company Number: None

PATIENT
  Age: 84 Year
  Sex: Male
  Weight: 122 kg

DRUGS (9)
  1. AMBIEN [Suspect]
     Indication: INSOMNIA
     Dosage: 10MG QHS PRN PO
     Route: 048
     Dates: start: 20090807, end: 20090810
  2. AFRIN [Concomitant]
  3. LASIX [Concomitant]
  4. LOTENSIN [Concomitant]
  5. MICRONASE [Concomitant]
  6. NORVASC [Concomitant]
  7. PRAVACHOL [Concomitant]
  8. MULTI-VITAMIN [Concomitant]
  9. VANCOMYCIN [Concomitant]

REACTIONS (4)
  - BREATH SOUNDS ABNORMAL [None]
  - OXYGEN SATURATION DECREASED [None]
  - RESPIRATORY RATE INCREASED [None]
  - UNRESPONSIVE TO STIMULI [None]
